FAERS Safety Report 23273781 (Version 1)
Quarter: 2023Q4

REPORT INFORMATION
  Report Type: Spontaneous
  Country: US (occurrence: US)
  Receive Date: 20231207
  Receipt Date: 20231207
  Transmission Date: 20240110
  Serious: Yes (Hospitalization)
  Sender: FDA-Public Use
  Company Number: US-VIWITPHARMA-2023VWTLIT00022

PATIENT
  Age: 26 Year
  Sex: Male

DRUGS (3)
  1. SERTRALINE [Suspect]
     Active Substance: SERTRALINE HYDROCHLORIDE
     Indication: Major depression
  2. BUPROPION [Suspect]
     Active Substance: BUPROPION
     Indication: Major depression
  3. BUPROPION [Suspect]
     Active Substance: BUPROPION

REACTIONS (1)
  - Sleep paralysis [Recovered/Resolved]
